FAERS Safety Report 6036843-0 (Version None)
Quarter: 2009Q1

REPORT INFORMATION
  Report Type: 
  Country: None (occurrence: None)
  Receive Date: 20090114
  Receipt Date: 20090109
  Transmission Date: 20090719
  Serious: Yes (Hospitalization)
  Sender: FDA-Public Use
  Company Number: PHHY2009DE00923

PATIENT
  Sex: Female
  Weight: 82 kg

DRUGS (8)
  1. ZOMETA [Suspect]
     Indication: BONE DISORDER
     Dosage: 4 MG EVERY 4 WEEKS
     Route: 042
     Dates: start: 20050603
  2. MELPHALAN [Concomitant]
     Dosage: 15 MG/M^2
     Dates: start: 20050613, end: 20060320
  3. PREDNISOLONE [Concomitant]
     Dosage: UNK
     Dates: start: 20050613, end: 20060320
  4. RADIOTHERAPY [Concomitant]
     Dosage: UNK
     Dates: start: 20050616, end: 20050713
  5. MICARDIS [Concomitant]
     Dosage: 80 MG
  6. BISOPROLOL [Concomitant]
     Dosage: 10 MG/DAY
  7. ASPIRIN [Concomitant]
     Dosage: 100 MG/DAY
  8. PROTAPHANE [Concomitant]
     Indication: DIABETES MELLITUS
     Dosage: 34 E

REACTIONS (6)
  - ASTHENIA [None]
  - CHILLS [None]
  - HERPES ZOSTER [None]
  - NAUSEA [None]
  - OSTEONECROSIS [None]
  - SEQUESTRECTOMY [None]
